FAERS Safety Report 5317904-8 (Version None)
Quarter: 2007Q2

REPORT INFORMATION
  Report Type: 
  Country: None (occurrence: None)
  Receive Date: 20070507
  Receipt Date: 20070502
  Transmission Date: 20071010
  Serious: Yes (Disabling)
  Sender: FDA-Public Use
  Company Number: B0461017A

PATIENT
  Age: 48 Year
  Sex: Female
  Weight: 54 kg

DRUGS (5)
  1. VALACYCLOVIR HCL [Suspect]
     Indication: GENITAL HERPES
     Dosage: 2TAB PER DAY
     Route: 048
     Dates: start: 20070302, end: 20070307
  2. COLPOTROPHINE [Concomitant]
     Indication: DRUG USE FOR UNKNOWN INDICATION
     Route: 067
  3. CERAZETTE [Concomitant]
     Indication: CONTRACEPTION
     Dosage: 1TAB PER DAY
     Route: 048
  4. ZITHROMAX [Concomitant]
     Indication: PHARYNGITIS
     Dosage: 2TAB PER DAY
     Route: 048
     Dates: start: 20070302, end: 20070304
  5. POLYGYNAX [Concomitant]
     Dosage: 1UNIT AT NIGHT
     Route: 067
     Dates: start: 20070302, end: 20070307

REACTIONS (1)
  - MUSCULOSKELETAL PAIN [None]
